FAERS Safety Report 7605656-8 (Version None)
Quarter: 2011Q3

REPORT INFORMATION
  Report Type: 
  Country: None (occurrence: None)
  Receive Date: 20110713
  Receipt Date: 20110705
  Transmission Date: 20111222
  Serious: Yes (Hospitalization, Other)
  Sender: FDA-Public Use
  Company Number: US-JNJFOC-20110505118

PATIENT
  Sex: Female

DRUGS (4)
  1. LEVAQUIN [Suspect]
     Indication: BACTERIAL INFECTION
     Route: 048
     Dates: start: 20080201
  2. LEVAQUIN [Suspect]
     Indication: PRODUCT USED FOR UNKNOWN INDICATION
     Route: 065
  3. LEVAQUIN [Suspect]
     Indication: BRONCHIAL DISORDER
     Route: 048
     Dates: start: 20080201
  4. LEVAQUIN [Suspect]
     Indication: SINUS DISORDER
     Route: 048
     Dates: start: 20080201

REACTIONS (4)
  - TENOSYNOVITIS [None]
  - TENDON RUPTURE [None]
  - TENDON INJURY [None]
  - PLANTAR FASCIITIS [None]
